FAERS Safety Report 4807118-X (Version None)
Quarter: 2005Q4

REPORT INFORMATION
  Report Type: 
  Country: None (occurrence: None)
  Receive Date: 20051024
  Receipt Date: 20051014
  Transmission Date: 20060501
  Serious: Yes (Hospitalization)
  Sender: FDA-Public Use
  Company Number: 419695

PATIENT
  Age: 81 Year
  Sex: Male

DRUGS (9)
  1. CARVEDILOL [Suspect]
     Indication: AORTIC VALVE INCOMPETENCE
     Dosage: 2.5MG PER DAY
     Route: 048
     Dates: start: 20041115
  2. GLICLAZIDE [Concomitant]
  3. CANDESARTAN CILEXETIL [Concomitant]
  4. TORSEMIDE [Concomitant]
     Dates: start: 20041102
  5. GLICLAZIDE [Concomitant]
     Dates: start: 20041102
  6. BLOPRESS [Concomitant]
     Dates: start: 20041102
  7. FUROSEMIDE [Concomitant]
     Dates: start: 20050516
  8. PARIET [Concomitant]
     Dates: start: 20050516
  9. UBRETID [Concomitant]
     Dates: start: 20041102, end: 20041204

REACTIONS (4)
  - CARDIAC FAILURE [None]
  - HEPATIC CONGESTION [None]
  - LIVER FUNCTION TEST ABNORMAL [None]
  - MALAISE [None]
